FAERS Safety Report 17680858 (Version 2)
Quarter: 2020Q3

REPORT INFORMATION
  Report Type: Report from Study
  Country: US (occurrence: US)
  Receive Date: 20200417
  Receipt Date: 20200716
  Transmission Date: 20201102
  Serious: Yes (Hospitalization, Other)
  Sender: FDA-Public Use
  Company Number: US-AGIOS-2004US01806

PATIENT

DRUGS (3)
  1. TIBSOVO [Suspect]
     Active Substance: IVOSIDENIB
     Indication: ACUTE MYELOID LEUKAEMIA
     Dosage: 250 MILLIGRAM, 2 TABLETS (500 MG) DAILY
     Route: 048
     Dates: start: 20191126, end: 202002
  2. GILTERITINIB [Concomitant]
     Active Substance: GILTERITINIB
     Dosage: 40 MILLIGRAM
     Route: 048
     Dates: start: 20200317
  3. GILTERITINIB [Concomitant]
     Active Substance: GILTERITINIB
     Indication: ACUTE MYELOID LEUKAEMIA
     Dosage: 120 MILLIGRAM, QD
     Route: 048
     Dates: start: 20200225

REACTIONS (3)
  - Pneumonia [Unknown]
  - Skin exfoliation [Unknown]
  - Pyrexia [Unknown]
